FAERS Safety Report 6534724-7 (Version None)
Quarter: 2010Q1

REPORT INFORMATION
  Report Type: 
  Country: None (occurrence: None)
  Receive Date: 20100108
  Receipt Date: 20091007
  Transmission Date: 20100710
  Serious: No
  Sender: FDA-Public Use
  Company Number: 2009-00657

PATIENT
  Age: 57 Year
  Sex: Female
  Weight: 57.6068 kg

DRUGS (3)
  1. COLD REMEDY NASAL GEL [Suspect]
     Dosage: SPORADICALLY, 1 MONTH, 8 MONTHS AGO
  2. HERB SUPPLEMENTS [Concomitant]
  3. VITAMINS [Concomitant]

REACTIONS (1)
  - ANOSMIA [None]
